FAERS Safety Report 9355402 (Version 1)
Quarter: 2013Q2

REPORT INFORMATION
  Report Type: Spontaneous
  Country: GR (occurrence: GR)
  Receive Date: 20130619
  Receipt Date: 20130619
  Transmission Date: 20140414
  Serious: Yes (Other)
  Sender: FDA-Public Use
  Company Number: GR-JNJFOC-20130607535

PATIENT
  Sex: 0

DRUGS (6)
  1. REMICADE [Suspect]
     Indication: SJOGREN^S SYNDROME
     Route: 042
  2. REMICADE [Suspect]
     Indication: RHEUMATOID ARTHRITIS
     Route: 042
  3. CORTICOSTEROIDS [Suspect]
     Indication: SJOGREN^S SYNDROME
     Route: 065
  4. CORTICOSTEROIDS [Suspect]
     Indication: RHEUMATOID ARTHRITIS
     Route: 065
  5. METHOTREXATE [Suspect]
     Indication: SJOGREN^S SYNDROME
     Route: 065
  6. METHOTREXATE [Suspect]
     Indication: RHEUMATOID ARTHRITIS
     Route: 065

REACTIONS (7)
  - Lymphoma [Unknown]
  - Clear cell renal cell carcinoma [Unknown]
  - Hepatocellular carcinoma [Unknown]
  - Gastrointestinal carcinoma [Unknown]
  - Prostate cancer [Unknown]
  - Carcinoid tumour pulmonary [Unknown]
  - Intraductal proliferative breast lesion [Unknown]
